FAERS Safety Report 15848507 (Version 1)
Quarter: 2019Q1

REPORT INFORMATION
  Report Type: Spontaneous
  Country: US (occurrence: US)
  Receive Date: 20190121
  Receipt Date: 20190121
  Transmission Date: 20190417
  Serious: Yes (Other)
  Sender: FDA-Public Use
  Company Number: US-KERYX BIOPHARMACEUTICALS INC.-2019US004718

PATIENT
  Sex: Female

DRUGS (2)
  1. IRON [Concomitant]
     Active Substance: IRON
     Route: 042
  2. AURYXIA [Suspect]
     Active Substance: TETRAFERRIC TRICITRATE DECAHYDRATE
     Indication: HYPERPHOSPHATAEMIA
     Dosage: UNK

REACTIONS (2)
  - Serum ferritin increased [Unknown]
  - Hepatic siderosis [Unknown]
